FAERS Safety Report 16675545 (Version 5)
Quarter: 2019Q4

REPORT INFORMATION
  Report Type: Report from Study
  Country: US (occurrence: US)
  Receive Date: 20190806
  Receipt Date: 20191224
  Transmission Date: 20200122
  Serious: Yes (Hospitalization)
  Sender: FDA-Public Use
  Company Number: US-ACTELION-A-NJ2019-185359

PATIENT
  Age: 76 Year
  Sex: Female
  Weight: 108.84 kg

DRUGS (4)
  1. REMODULIN [Interacting]
     Active Substance: TREPROSTINIL
     Indication: PRODUCT USED FOR UNKNOWN INDICATION
     Dosage: UNK
     Route: 065
  2. TADALAFIL. [Concomitant]
     Active Substance: TADALAFIL
  3. OPSUMIT [Suspect]
     Active Substance: MACITENTAN
     Indication: PULMONARY ARTERIAL HYPERTENSION
     Dosage: 10 MG, QD
     Route: 048
  4. LISINOPRIL. [Interacting]
     Active Substance: LISINOPRIL
     Indication: PRODUCT USED FOR UNKNOWN INDICATION
     Route: 065

REACTIONS (11)
  - Product dose omission [Recovered/Resolved]
  - Product administration error [Unknown]
  - Balance disorder [Unknown]
  - Dyspnoea [Unknown]
  - Protein urine present [Unknown]
  - Fluid retention [Recovered/Resolved]
  - Drug interaction [Recovered/Resolved]
  - Hypertension [Unknown]
  - Hypotension [Unknown]
  - Catheterisation cardiac [Unknown]
  - Pain in extremity [Unknown]

NARRATIVE: CASE EVENT DATE: 20190826
